FAERS Safety Report 17018078 (Version 1)
Quarter: 2019Q4

REPORT INFORMATION
  Report Type: Report from Study
  Country: US (occurrence: US)
  Receive Date: 20191111
  Receipt Date: 20191111
  Transmission Date: 20200122
  Serious: Yes (Hospitalization)
  Sender: FDA-Public Use
  Company Number: US-EXELIXIS-CABO-19025020

PATIENT
  Age: 77 Year
  Sex: Male

DRUGS (15)
  1. MULTIPLE VITAMINS [Concomitant]
     Active Substance: VITAMINS
  2. FEBUXOSTAT. [Concomitant]
     Active Substance: FEBUXOSTAT
  3. ATORVASTATIN CALCIUM. [Concomitant]
     Active Substance: ATORVASTATIN CALCIUM
  4. MYCOPHENOLIC ACID. [Concomitant]
     Active Substance: MYCOPHENOLIC ACID
  5. METOLAZONE. [Concomitant]
     Active Substance: METOLAZONE
  6. VITAMIN D3 [Concomitant]
     Active Substance: CHOLECALCIFEROL
  7. DAPSONE. [Concomitant]
     Active Substance: DAPSONE
  8. CABOMETYX [Suspect]
     Active Substance: CABOZANTINIB S-MALATE
     Indication: RENAL CANCER
     Dosage: 40 MG, QD
     Route: 048
     Dates: start: 20190911
  9. PROGRAF [Concomitant]
     Active Substance: TACROLIMUS
  10. DOXAZOSIN MESYLATE. [Concomitant]
     Active Substance: DOXAZOSIN MESYLATE
  11. FLUDROCORTISON ACETATE [Concomitant]
  12. ASPIRIN EC [Concomitant]
     Active Substance: ASPIRIN
  13. NIFEDIPINE. [Concomitant]
     Active Substance: NIFEDIPINE
  14. OXYBUTYNIN CHLORIDE. [Concomitant]
     Active Substance: OXYBUTYNIN CHLORIDE
  15. METOPROLOL TARTRATE. [Concomitant]
     Active Substance: METOPROLOL TARTRATE

REACTIONS (3)
  - Skin exfoliation [Unknown]
  - Thrombosis [Unknown]
  - Fluid retention [Unknown]

NARRATIVE: CASE EVENT DATE: 20191101
